FAERS Safety Report 5931723-0 (Version None)
Quarter: 2008Q4

REPORT INFORMATION
  Report Type: 
  Country: None (occurrence: None)
  Receive Date: 20081027
  Receipt Date: 20081015
  Transmission Date: 20090506
  Serious: Yes (Hospitalization)
  Sender: FDA-Public Use
  Company Number: GB-ROCHE-591786

PATIENT
  Sex: Female
  Weight: 122.9 kg

DRUGS (3)
  1. ORLISTAT [Suspect]
     Indication: OBESITY
     Route: 048
     Dates: start: 20080903, end: 20081010
  2. SALBUTAMOL [Concomitant]
     Indication: ASTHMA
     Dosage: REPORTED AS SALBUTAMOL EVOHALER
     Route: 055
  3. SERETIDE [Concomitant]
     Indication: ASTHMA
     Dosage: REPORTED AS SERETIDE EVOHALER
     Route: 055

REACTIONS (2)
  - ASTHMA [None]
  - LOWER RESPIRATORY TRACT INFECTION [None]
